FAERS Safety Report 6051923-1 (Version None)
Quarter: 2009Q1

REPORT INFORMATION
  Report Type: 
  Country: None (occurrence: None)
  Receive Date: 20090121
  Receipt Date: 20090121
  Transmission Date: 20090719
  Serious: No
  Sender: FDA-Public Use
  Company Number: None

PATIENT
  Age: 60 Year
  Sex: Female
  Weight: 49 kg

DRUGS (1)
  1. TRASTUZUMAB [Suspect]
     Indication: CHEMOTHERAPY
     Dosage: 100 MG X 1 IV
     Route: 042
     Dates: start: 20080813

REACTIONS (2)
  - DYSPNOEA [None]
  - NAUSEA [None]
